FAERS Safety Report 21078952 (Version 10)
Quarter: 2024Q4

REPORT INFORMATION
  Report Type: Report from Study
  Country: JP (occurrence: JP)
  Receive Date: 20220713
  Receipt Date: 20241210
  Transmission Date: 20250114
  Serious: Yes (Life-Threatening, Hospitalization, Other)
  Sender: TAKEDA
  Company Number: JP-TAKEDA-2022TJP048702

PATIENT
  Age: 1 Year
  Sex: Male
  Weight: 4.25 kg

DRUGS (24)
  1. TEDUGLUTIDE [Suspect]
     Active Substance: TEDUGLUTIDE
     Indication: Short-bowel syndrome
     Dosage: 0.05 MILLIGRAM/KILOGRAM, QD
     Dates: start: 20220207, end: 20220212
  2. TEDUGLUTIDE [Suspect]
     Active Substance: TEDUGLUTIDE
     Dosage: 0.02 MILLIGRAM/KILOGRAM
     Dates: start: 20220213, end: 20220311
  3. TEDUGLUTIDE [Suspect]
     Active Substance: TEDUGLUTIDE
     Dosage: 0.05 MILLIGRAM/KILOGRAM
  4. TEDUGLUTIDE [Suspect]
     Active Substance: TEDUGLUTIDE
     Dosage: 0.05 MILLIGRAM/KILOGRAM
     Dates: start: 20220712, end: 20230130
  5. CUPRIC SULFATE\FERRIC CHLORIDE\MANGANESE CHLORIDE\POTASSIUM IODIDE\ZIN [Concomitant]
     Active Substance: CUPRIC SULFATE\FERRIC CHLORIDE\MANGANESE CHLORIDE\POTASSIUM IODIDE\ZINC SULFATE
     Indication: Short-bowel syndrome
     Dosage: UNK
  6. ASELEND [Concomitant]
     Indication: Short-bowel syndrome
     Dosage: UNK
  7. LEVOCARNITINE [Concomitant]
     Active Substance: LEVOCARNITINE
     Indication: Short-bowel syndrome
     Dosage: UNK
  8. SOYBEAN OIL [Concomitant]
     Active Substance: SOYBEAN OIL
     Indication: Short-bowel syndrome
     Dosage: UNK
  9. MIYA-BM [Concomitant]
     Active Substance: CLOSTRIDIUM BUTYRICUM SPORES STRAIN M-55
     Indication: Short-bowel syndrome
     Dosage: UNK
  10. MARZULENE [Concomitant]
     Indication: Short-bowel syndrome
     Dosage: UNK
  11. GASTER [Concomitant]
     Active Substance: FAMOTIDINE
     Indication: Short-bowel syndrome
     Dosage: UNK
  12. URSO [Concomitant]
     Active Substance: URSODIOL
     Dosage: UNK
  13. LEVOTHYROXINE SODIUM [Concomitant]
     Active Substance: LEVOTHYROXINE SODIUM
     Dosage: UNK
  14. GASTER [Concomitant]
     Active Substance: FAMOTIDINE
     Dosage: UNK
  15. ASELEND [Concomitant]
     Dosage: UNK
  16. MEROPENEM [Concomitant]
     Active Substance: MEROPENEM
     Dosage: UNK
  17. VANCOMYCIN HYDROCHLORIDE [Concomitant]
     Active Substance: VANCOMYCIN HYDROCHLORIDE
     Dosage: UNK
  18. CUPRIC SULFATE\FERRIC CHLORIDE\MANGANESE CHLORIDE\POTASSIUM IODIDE\ZIN [Concomitant]
     Active Substance: CUPRIC SULFATE\FERRIC CHLORIDE\MANGANESE CHLORIDE\POTASSIUM IODIDE\ZINC SULFATE
     Dosage: UNK
  19. VITAMINS [Concomitant]
     Active Substance: VITAMINS
     Dosage: UNK
  20. CALCIUM GLUCONATE [Concomitant]
     Active Substance: CALCIUM GLUCONATE
     Dosage: UNK
  21. MAGNESIUM SULFATE [Concomitant]
     Active Substance: MAGNESIUM SULFATE
     Dosage: UNK
  22. POTASSIUM ASPARTATE [Concomitant]
     Active Substance: POTASSIUM ASPARTATE
     Dosage: UNK
  23. DEXTROSE [Concomitant]
     Active Substance: DEXTROSE MONOHYDRATE
     Dosage: UNK
  24. CALCIUM CHLORIDE\POTASSIUM CHLORIDE\SODIUM CHLORIDE\SODIUM LACTATE [Concomitant]
     Active Substance: CALCIUM CHLORIDE\POTASSIUM CHLORIDE\SODIUM CHLORIDE\SODIUM LACTATE
     Dosage: UNK

REACTIONS (9)
  - Generalised oedema [Recovering/Resolving]
  - Shock haemorrhagic [Recovering/Resolving]
  - Melaena [Recovering/Resolving]
  - Abdominal distension [Recovering/Resolving]
  - Enterocolitis [Recovering/Resolving]
  - Cellulitis [Recovering/Resolving]
  - Complication associated with device [Recovering/Resolving]
  - Product use issue [Recovering/Resolving]
  - Off label use [Recovering/Resolving]

NARRATIVE: CASE EVENT DATE: 20220207
